FAERS Safety Report 23622209 (Version 1)
Quarter: 2024Q1

REPORT INFORMATION
  Report Type: Spontaneous
  Country: GB (occurrence: GB)
  Receive Date: 20240312
  Receipt Date: 20240312
  Transmission Date: 20240410
  Serious: Yes (Hospitalization, Disabling, Other)
  Sender: FDA-Public Use
  Company Number: None

PATIENT
  Age: 26 Year
  Sex: Female
  Weight: 134 kg

DRUGS (3)
  1. TRETINOIN [Suspect]
     Active Substance: TRETINOIN
     Indication: Acute promyelocytic leukaemia
     Dosage: 50 MILLIGRAM, BID
     Route: 065
     Dates: start: 20231225
  2. TRETINOIN [Suspect]
     Active Substance: TRETINOIN
     Dosage: 50 MILLIGRAM, QD
     Route: 065
     Dates: start: 20231225
  3. ARSENIC TRIOXIDE [Suspect]
     Active Substance: ARSENIC TRIOXIDE
     Indication: Acute promyelocytic leukaemia
     Dosage: UNK
     Route: 065
     Dates: start: 20231225

REACTIONS (1)
  - Idiopathic intracranial hypertension [Recovering/Resolving]
